FAERS Safety Report 9562278 (Version 1)
Quarter: 2013Q3

REPORT INFORMATION
  Report Type: Spontaneous
  Country: US (occurrence: US)
  Receive Date: 20130927
  Receipt Date: 20130927
  Transmission Date: 20140515
  Serious: No
  Sender: FDA-Public Use
  Company Number: US-GLAXOSMITHKLINE-A1038328A

PATIENT
  Age: 22 Year
  Sex: Female
  Weight: 94.5 kg

DRUGS (3)
  1. MEKINIST [Suspect]
     Indication: METASTATIC MALIGNANT MELANOMA
     Dosage: 2MG PER DAY
     Route: 048
     Dates: start: 20130806
  2. BIRTH CONTROL [Concomitant]
  3. FERROUS SULFATE [Concomitant]

REACTIONS (1)
  - Rash [Not Recovered/Not Resolved]
